FAERS Safety Report 14498180 (Version 1)
Quarter: 2018Q1

REPORT INFORMATION
  Report Type: Spontaneous
  Country: US (occurrence: US)
  Receive Date: 20180207
  Receipt Date: 20180207
  Transmission Date: 20180509
  Serious: Yes (Hospitalization)
  Sender: FDA-Public Use
  Company Number: US-HLSUS-2017-US-000723

PATIENT
  Age: 54 Year
  Sex: Female

DRUGS (1)
  1. CLOZARIL [Suspect]
     Active Substance: CLOZAPINE
     Indication: SCHIZOPHRENIA
     Dosage: 650MG ONCE DAILY
     Route: 048

REACTIONS (12)
  - Constipation [Not Recovered/Not Resolved]
  - Panic attack [Recovered/Resolved]
  - Memory impairment [Unknown]
  - Cardiac murmur [Not Recovered/Not Resolved]
  - Weight decreased [Unknown]
  - Drooling [Recovered/Resolved]
  - Incontinence [Not Recovered/Not Resolved]
  - Dizziness [Unknown]
  - Weight increased [Recovered/Resolved]
  - Large intestinal obstruction [Unknown]
  - Seizure [Unknown]
  - Blood pressure measurement [Recovered/Resolved]
